FAERS Safety Report 26119728 (Version 3)
Quarter: 2025Q4

REPORT INFORMATION
  Report Type: Spontaneous
  Country: EU (occurrence: EU)
  Receive Date: 20251204
  Receipt Date: 20251219
  Transmission Date: 20260117
  Serious: Yes (Hospitalization, Other)
  Sender: CELLTRION
  Company Number: EU-ABBVIE-6558656

PATIENT

DRUGS (10)
  1. ADALIMUMAB [Suspect]
     Active Substance: ADALIMUMAB
     Indication: Colitis ulcerative
     Dosage: UNK
     Route: 058
  2. ADALIMUMAB [Suspect]
     Active Substance: ADALIMUMAB
     Dosage: UNK
     Route: 065
  3. INFLIXIMAB [Suspect]
     Active Substance: INFLIXIMAB
     Indication: Colitis ulcerative
     Dosage: 10 MILLIGRAM/SQ. METER (HIGH DOSE-EVERY 14 WEEKS)
     Route: 065
  4. INFLIXIMAB [Suspect]
     Active Substance: INFLIXIMAB
     Dosage: 10 MILLIGRAM/SQ. METER (HIGH DOSE)
     Route: 065
  5. UPADACITINIB [Suspect]
     Active Substance: UPADACITINIB
     Indication: Colitis ulcerative
     Dosage: 45 MILLIGRAM, QD
     Route: 048
  6. UPADACITINIB [Suspect]
     Active Substance: UPADACITINIB
     Dosage: 30 MILLIGRAM, QD
     Route: 048
  7. MESALAMINE [Concomitant]
     Active Substance: MESALAMINE
     Indication: Colitis ulcerative
  8. AZATHIOPRINE [Concomitant]
     Active Substance: AZATHIOPRINE
     Indication: Colitis ulcerative
  9. UPADACITINIB [Concomitant]
     Active Substance: UPADACITINIB
     Indication: Colitis ulcerative
     Dosage: 45 MILLIGRAM, QD
  10. UPADACITINIB [Concomitant]
     Active Substance: UPADACITINIB
     Dosage: 30 MILLIGRAM, QD

REACTIONS (5)
  - Colitis ulcerative [Recovering/Resolving]
  - Therapeutic product effect incomplete [Unknown]
  - Therapy partial responder [Unknown]
  - Off label use [Unknown]
  - Intentional product use issue [Unknown]
